FAERS Safety Report 5905908-3 (Version None)
Quarter: 2008Q4

REPORT INFORMATION
  Report Type: 
  Country: None (occurrence: None)
  Receive Date: 20081001
  Receipt Date: 20081001
  Transmission Date: 20090506
  Serious: Yes (Other)
  Sender: FDA-Public Use
  Company Number: None

PATIENT
  Age: 16 Year
  Weight: 57.6068 kg

DRUGS (2)
  1. TAMIFLU [Suspect]
     Indication: INFLUENZA
     Dosage: AS DIRECTED ADULT DOSE 2 TIMES A DAY PO
     Route: 048
     Dates: start: 20080924, end: 20080928
  2. OSELTAMIVIR [Concomitant]

REACTIONS (3)
  - ABASIA [None]
  - BEDRIDDEN [None]
  - DERMATITIS [None]
